FAERS Safety Report 12529769 (Version 1)
Quarter: 2016Q3

REPORT INFORMATION
  Report Type: Spontaneous
  Country: US (occurrence: US)
  Receive Date: 20160706
  Receipt Date: 20160706
  Transmission Date: 20161109
  Serious: Yes (Hospitalization)
  Sender: FDA-Public Use
  Company Number: US-ROCHE-1789413

PATIENT
  Sex: Male

DRUGS (4)
  1. NUTROPIN [Suspect]
     Active Substance: SOMATROPIN
     Indication: GROWTH HORMONE DEFICIENCY
     Dosage: LATE 2012/ EARLY 2013
     Route: 065
  2. NUTROPIN [Suspect]
     Active Substance: SOMATROPIN
     Route: 065
  3. NUTROPIN [Suspect]
     Active Substance: SOMATROPIN
     Route: 065
  4. NUTROPIN [Suspect]
     Active Substance: SOMATROPIN
     Route: 065

REACTIONS (1)
  - Intestinal obstruction [Not Recovered/Not Resolved]
